FAERS Safety Report 9952520 (Version 1)
Quarter: 2014Q1

REPORT INFORMATION
  Report Type: Spontaneous
  Country: US (occurrence: US)
  Receive Date: 20140304
  Receipt Date: 20140304
  Transmission Date: 20141002
  Serious: No
  Sender: FDA-Public Use
  Company Number: US-AMGEN-USASP2013072361

PATIENT
  Age: 46 Year
  Sex: Female
  Weight: 58.95 kg

DRUGS (5)
  1. ENBREL [Suspect]
     Indication: PRODUCT USED FOR UNKNOWN INDICATION
     Dosage: 25 MG, 2 TIMES/WK
     Route: 058
  2. INDOCIN                            /00003801/ [Concomitant]
     Dosage: 75 MG, UNK (SR)
  3. SULFASALAZIN [Concomitant]
     Dosage: 500 MG, UNK
  4. NITROFURANTIN [Concomitant]
     Dosage: 100 MG, UNK
  5. VITAMIN D                          /00107901/ [Concomitant]
     Dosage: 1000 UNIT, UNK

REACTIONS (1)
  - Drug ineffective [Unknown]
